FAERS Safety Report 4972911-X (Version None)
Quarter: 2006Q2

REPORT INFORMATION
  Report Type: 
  Country: None (occurrence: None)
  Receive Date: 20060414
  Receipt Date: 20060406
  Transmission Date: 20061013
  Serious: Yes (Other)
  Sender: FDA-Public Use
  Company Number: US-JNJFOC-20060401562

PATIENT
  Sex: Female

DRUGS (27)
  1. REMICADE [Suspect]
     Indication: RHEUMATOID ARTHRITIS
     Route: 042
  2. CLONAZEPAM [Concomitant]
  3. FLORINAL [Concomitant]
  4. FLORINAL [Concomitant]
  5. FLORINAL [Concomitant]
     Dosage: 1 TAB DAILY
  6. FOLIC ACID [Concomitant]
  7. FUROSEMIDE [Concomitant]
  8. HYDROCODONE BITARTRATE + ACETAMINOPHEN [Concomitant]
  9. HYDROCODONE BITARTRATE + ACETAMINOPHEN [Concomitant]
  10. LEVOTHROID [Concomitant]
  11. LORAZEPAM [Concomitant]
     Dosage: 3 TABS DAILY
  12. METHOTREXATE [Concomitant]
  13. MULTI-VITAMIN [Concomitant]
  14. MULTI-VITAMIN [Concomitant]
  15. MULTI-VITAMIN [Concomitant]
  16. MULTI-VITAMIN [Concomitant]
  17. MULTI-VITAMIN [Concomitant]
  18. MULTI-VITAMIN [Concomitant]
  19. MULTI-VITAMIN [Concomitant]
  20. MULTI-VITAMIN [Concomitant]
  21. PREDNISONE [Concomitant]
  22. PREVACID [Concomitant]
  23. RISPERDAL [Concomitant]
  24. TYLENOL (CAPLET) [Concomitant]
  25. PROTONIX [Concomitant]
  26. LEXAPRO [Concomitant]
  27. CALCIUM PLUS D [Concomitant]

REACTIONS (1)
  - BREAST CANCER [None]
